FAERS Safety Report 10141603 (Version 5)
Quarter: 2014Q2

REPORT INFORMATION
  Report Type: Report from Study
  Country: FR (occurrence: FR)
  Receive Date: 20140429
  Receipt Date: 20140627
  Transmission Date: 20141212
  Serious: Yes (Hospitalization)
  Sender: FDA-Public Use
  Company Number: FR-GLAXOSMITHKLINE-Z0022554A

PATIENT
  Age: 42 Year
  Sex: Female
  Weight: 38 kg

DRUGS (2)
  1. DABRAFENIB [Suspect]
     Indication: COLORECTAL CANCER
     Dosage: 150MG TWICE PER DAY
     Route: 048
     Dates: start: 20140407
  2. PANITUMUMAB [Suspect]
     Indication: COLORECTAL CANCER
     Dosage: 6MGK EVERY TWO WEEKS
     Route: 042
     Dates: start: 20140407

REACTIONS (2)
  - Pyrexia [Recovered/Resolved]
  - Diarrhoea haemorrhagic [Recovered/Resolved]
